FAERS Safety Report 8093425-7 (Version None)
Quarter: 2012Q1

REPORT INFORMATION
  Report Type: 
  Country: None (occurrence: None)
  Receive Date: 20120128
  Receipt Date: 20110909
  Transmission Date: 20120608
  Serious: No
  Sender: FDA-Public Use
  Company Number: US-ABBOTT-11P-163-0851110-00

PATIENT
  Age: 46 Year
  Sex: Female

DRUGS (3)
  1. PAIN MEDICATION [Concomitant]
     Indication: PAIN
  2. HUMIRA [Suspect]
     Indication: PSORIATIC ARTHROPATHY
     Dates: start: 20110701, end: 20110817
  3. BENADRYL [Concomitant]
     Indication: PRODUCT USED FOR UNKNOWN INDICATION

REACTIONS (5)
  - TOOTH DISORDER [None]
  - HERPES VIRUS INFECTION [None]
  - HAEMORRHAGE [None]
  - TOOTH ABSCESS [None]
  - MUSCULOSKELETAL PAIN [None]
